FAERS Safety Report 17324892 (Version 1)
Quarter: 2020Q1

REPORT INFORMATION
  Report Type: Spontaneous
  Country: US (occurrence: US)
  Receive Date: 20200127
  Receipt Date: 20200127
  Transmission Date: 20200409
  Serious: Yes (Hospitalization, Other)
  Sender: FDA-Public Use
  Company Number: US-JAZZ-2014-US-012741

PATIENT
  Age: 54 Year
  Sex: Female
  Weight: 56.69 kg

DRUGS (3)
  1. XYREM [Suspect]
     Active Substance: SODIUM OXYBATE
     Dosage: 4.5 G, BID
     Route: 048
     Dates: start: 200612
  2. XYREM [Suspect]
     Active Substance: SODIUM OXYBATE
     Indication: NARCOLEPSY
     Dosage: 4.5 G, BID
     Route: 048
     Dates: start: 2005
  3. XYREM [Suspect]
     Active Substance: SODIUM OXYBATE
     Indication: CATAPLEXY
     Dosage: DOSE ADJUSTMENTS
     Route: 048

REACTIONS (5)
  - Duodenogastric reflux [Not Recovered/Not Resolved]
  - Weight decreased [Unknown]
  - Gastritis [Unknown]
  - Dyspepsia [Not Recovered/Not Resolved]
  - Dilatation intrahepatic duct acquired [Not Recovered/Not Resolved]

NARRATIVE: CASE EVENT DATE: 201409
